FAERS Safety Report 4940483-1 (Version None)
Quarter: 2006Q1

REPORT INFORMATION
  Report Type: 
  Country: None (occurrence: None)
  Receive Date: 20060131
  Receipt Date: 20051026
  Transmission Date: 20060701
  Serious: No
  Sender: FDA-Public Use
  Company Number: 200519306US

PATIENT
  Age: 55 Year
  Sex: Male

DRUGS (6)
  1. KETEK [Suspect]
     Indication: PULMONARY CONGESTION
     Dosage: 400 MG BID PO
     Route: 048
     Dates: start: 20051021
  2. KETEK [Suspect]
     Indication: WHEEZING
     Dosage: 400 MG BID PO
     Route: 048
     Dates: start: 20051021
  3. TRAZODONE HYDROCHLORIDE (DESYREL) [Concomitant]
  4. PAXIL [Concomitant]
  5. NEURONTIN [Concomitant]
  6. ASPIRIN [Concomitant]

REACTIONS (1)
  - HEADACHE [None]
